FAERS Safety Report 5894330-4 (Version None)
Quarter: 2008Q3

REPORT INFORMATION
  Report Type: 
  Country: None (occurrence: None)
  Receive Date: 20080922
  Receipt Date: 20080909
  Transmission Date: 20090109
  Serious: Yes (Death)
  Sender: FDA-Public Use
  Company Number: 15883

PATIENT
  Age: 51 Year
  Sex: Male

DRUGS (5)
  1. MORPHINE SULFATE [Suspect]
     Indication: PAIN
  2. HYDROCODONE BITARTRATE [Concomitant]
  3. RITALIN [Concomitant]
  4. ELAVIL [Concomitant]
  5. INSULIN [Concomitant]

REACTIONS (1)
  - DRUG TOXICITY [None]
